FAERS Safety Report 8505692-3 (Version None)
Quarter: 2012Q3

REPORT INFORMATION
  Report Type: 
  Country: None (occurrence: None)
  Receive Date: 20120706
  Receipt Date: 20120706
  Transmission Date: 20120928
  Serious: Yes (Other)
  Sender: FDA-Public Use
  Company Number: None

PATIENT
  Age: 7 Year
  Sex: Female
  Weight: 30 kg

DRUGS (2)
  1. KETAMINE HCL [Suspect]
     Indication: SEDATION
     Dosage: 45MG ONCE IV
     Route: 042
     Dates: start: 20120606, end: 20120606
  2. KETAMINE HCL [Suspect]
     Indication: ACCIDENT
     Dosage: 45MG ONCE IV
     Route: 042
     Dates: start: 20120606, end: 20120606

REACTIONS (1)
  - CONVULSION [None]
